FAERS Safety Report 6657759-2 (Version None)
Quarter: 2010Q1

REPORT INFORMATION
  Report Type: 
  Country: None (occurrence: None)
  Receive Date: 20100322
  Receipt Date: 20090323
  Transmission Date: 20100710
  Serious: Yes (Other)
  Sender: FDA-Public Use
  Company Number: 2009US-22845

PATIENT
  Age: 11 Year
  Sex: Female

DRUGS (2)
  1. ISOTRETINOIN [Suspect]
     Indication: ACNE
     Dosage: 40 MG, ORAL
     Route: 048
  2. CLARAVIS [Suspect]
     Indication: ACNE
     Dosage: 30 MG, BID, ORAL
     Route: 048
     Dates: start: 20081023, end: 20090226

REACTIONS (1)
  - BLOOD TRIGLYCERIDES INCREASED [None]
